FAERS Safety Report 14771616 (Version 1)
Quarter: 2018Q2

REPORT INFORMATION
  Report Type: Spontaneous
  Country: US (occurrence: US)
  Receive Date: 20180417
  Receipt Date: 20180417
  Transmission Date: 20180711
  Serious: No
  Sender: FDA-Public Use
  Company Number: US-ALLERGAN-1724334US

PATIENT
  Sex: Female

DRUGS (5)
  1. ACIPHEX [Concomitant]
     Active Substance: RABEPRAZOLE SODIUM
     Indication: GASTROOESOPHAGEAL REFLUX DISEASE
     Dosage: UNK, UNKNOWN
     Route: 065
  2. LASTACAFT [Concomitant]
     Active Substance: ALCAFTADINE
     Indication: HYPERSENSITIVITY
     Dosage: UNK, UNKNOWN
     Route: 065
  3. LUMIGAN [Suspect]
     Active Substance: BIMATOPROST
     Indication: INTRAOCULAR PRESSURE INCREASED
     Dosage: 2 GTT, QD
     Route: 047
     Dates: start: 2016
  4. LUMIGAN [Suspect]
     Active Substance: BIMATOPROST
     Indication: RETINAL INJURY
  5. RESTASIS [Concomitant]
     Active Substance: CYCLOSPORINE
     Indication: DRY EYE
     Dosage: UNK, UNKNOWN
     Route: 047

REACTIONS (6)
  - Eye irritation [Not Recovered/Not Resolved]
  - Off label use [Unknown]
  - Product dropper issue [Unknown]
  - Ocular hyperaemia [Not Recovered/Not Resolved]
  - Incorrect dosage administered [Unknown]
  - Growth of eyelashes [Not Recovered/Not Resolved]
